FAERS Safety Report 6112545-7 (Version None)
Quarter: 2009Q1

REPORT INFORMATION
  Report Type: 
  Country: None (occurrence: None)
  Receive Date: 20090312
  Receipt Date: 20090310
  Transmission Date: 20090719
  Serious: Yes (Hospitalization, Disabling)
  Sender: FDA-Public Use
  Company Number: DE-BRISTOL-MYERS SQUIBB COMPANY-14039721

PATIENT
  Age: 77 Year
  Sex: Male

DRUGS (8)
  1. ERBITUX [Suspect]
     Indication: COLON CANCER
     Dosage: MOST RECENT INFUSION (22ND), WAS ON 18DEC07;TEMPORARILY DISCONTINUED
     Route: 041
     Dates: start: 20070704
  2. IRINOTECAN HCL [Suspect]
     Indication: ADENOCARCINOMA
     Dosage: MOST RECENT INFUSION ON 11DEC07;TEMPORARILY DISCONTINUED.
     Route: 041
     Dates: start: 20070704
  3. MARCUMAR [Concomitant]
  4. FENISTIL [Concomitant]
     Route: 042
  5. RANITIDINE [Concomitant]
  6. DEXAMETHASONE [Concomitant]
  7. KEVATRIL [Concomitant]
  8. BENALAPRIL [Concomitant]

REACTIONS (2)
  - DERMATITIS ACNEIFORM [None]
  - LEUKOCYTOCLASTIC VASCULITIS [None]
